FAERS Safety Report 4721073-2 (Version None)
Quarter: 2005Q3

REPORT INFORMATION
  Report Type: 
  Country: None (occurrence: None)
  Receive Date: 20050719
  Receipt Date: 20041001
  Transmission Date: 20060218
  Serious: Yes (Hospitalization)
  Sender: FDA-Public Use
  Company Number: 2003147874US

PATIENT
  Age: 33 Year
  Sex: Male

DRUGS (1)
  1. CELEBREX [Suspect]
     Dosage: 200 MG, QD, ORAL
     Route: 048
     Dates: start: 19990427

REACTIONS (2)
  - DEEP VEIN THROMBOSIS [None]
  - DRUG INEFFECTIVE [None]
